FAERS Safety Report 6766609-5 (Version None)
Quarter: 2010Q2

REPORT INFORMATION
  Report Type: 
  Country: None (occurrence: None)
  Receive Date: 20100611
  Receipt Date: 20100608
  Transmission Date: 20101027
  Serious: Yes (Hospitalization)
  Sender: FDA-Public Use
  Company Number: US-BRISTOL-MYERS SQUIBB COMPANY-15013444

PATIENT
  Age: 66 Year
  Sex: Male

DRUGS (41)
  1. CISPLATIN [Suspect]
     Indication: SMALL CELL LUNG CANCER STAGE UNSPECIFIED
     Dosage: FORM=INJ
     Dates: start: 20091008
  2. ETOPOSIDE [Suspect]
     Indication: SMALL CELL LUNG CANCER STAGE UNSPECIFIED
     Dosage: FORM=INJ
     Dates: start: 20091008
  3. LAMOTRIGINE [Concomitant]
     Indication: BIPOLAR DISORDER
  4. BUPROPION HCL [Concomitant]
  5. ROSUVASTATIN CALCIUM [Concomitant]
     Indication: HYPERLIPIDAEMIA
  6. SERETIDE [Concomitant]
     Indication: DYSPNOEA
     Dosage: 1 DF= 250/50MCG
     Dates: start: 20090923
  7. SERETIDE [Concomitant]
     Indication: CHRONIC OBSTRUCTIVE PULMONARY DISEASE
     Dosage: 1 DF= 250/50MCG
     Dates: start: 20090923
  8. VIGRAN [Concomitant]
     Indication: MEDICAL DIET
     Dosage: 1 DF= 1 TABS
  9. SENNA [Concomitant]
     Indication: CONSTIPATION
  10. DIGOXIN [Concomitant]
     Indication: ATRIAL FLUTTER
     Dates: start: 20090923
  11. DILTIAZEM HCL [Concomitant]
     Indication: HYPERTENSION
  12. OXYCODONE HCL [Concomitant]
     Indication: CHEST PAIN
     Dosage: 30OCT09-(30MG) 5MG 1 IN 4 HOUR, 20MG 2 IN 1 D; 30OCT09;23SEP TO 30COT2009, 37DAYS
     Dates: start: 20090923
  13. OXYCODONE HCL [Concomitant]
     Indication: PAIN
     Dosage: 30OCT09-(30MG) 5MG 1 IN 4 HOUR, 20MG 2 IN 1 D; 30OCT09;23SEP TO 30COT2009, 37DAYS
     Dates: start: 20090923
  14. HYDROMORPHONE HCL [Concomitant]
     Indication: CHEST PAIN
     Dosage: 2MG FROM 23SEP09;21OCT09-23OCT09(2D)2 TO 4MG
     Dates: start: 20091021
  15. HYDROMORPHONE HCL [Concomitant]
     Indication: PAIN
     Dosage: 2MG FROM 23SEP09;21OCT09-23OCT09(2D)2 TO 4MG
     Dates: start: 20091021
  16. LORAZEPAM [Concomitant]
     Indication: INSOMNIA
  17. LORAZEPAM [Concomitant]
     Indication: ANXIETY
  18. MACROGOL [Concomitant]
     Indication: CONSTIPATION
  19. FUROSEMIDE [Concomitant]
     Indication: OEDEMA
     Dosage: 1 DF= 20MG/10MG; 40MG ONCE ON 25OCT2009
     Route: 042
     Dates: start: 20091008, end: 20091025
  20. LEVOFLOXACIN [Concomitant]
     Indication: PNEUMONIA
     Dosage: 09OCT09-15OCT09(6D);09NOV09-18NOV09(9D)
     Dates: start: 20091009
  21. LEVOFLOXACIN [Concomitant]
     Indication: OEDEMA
     Dosage: 09OCT09-15OCT09(6D);09NOV09-18NOV09(9D)
     Dates: start: 20091009
  22. LEVOFLOXACIN [Concomitant]
     Indication: ERYTHEMA
     Dosage: 09OCT09-15OCT09(6D);09NOV09-18NOV09(9D)
     Dates: start: 20091009
  23. PROCHLORPERAZINE EDISYLATE [Concomitant]
     Indication: NAUSEA
     Dates: start: 20091001
  24. ONDANSETRON [Concomitant]
     Indication: NAUSEA
     Route: 042
     Dates: start: 20091008
  25. ONDANSETRON [Concomitant]
     Indication: PROPHYLAXIS
     Route: 042
     Dates: start: 20091008
  26. CIPROFLOXACIN [Concomitant]
     Indication: INFECTION PROPHYLAXIS
     Dosage: 16OCT09-25OCT09(9D);08DEC09-17DEC09(9D)LACTATE
     Dates: start: 20091016
  27. DOCUSATE SODIUM [Concomitant]
     Indication: CONSTIPATION
     Dosage: 2 DF= 2 TABS
     Dates: start: 20091016
  28. VANCOMYCIN [Concomitant]
     Indication: PNEUMONIA
     Dosage: 19OCT09-23OCT09(4D);27OCT09-29OCT(2D)(2500MG)2/1D
     Dates: start: 20091019, end: 20091029
  29. APREPITANT [Concomitant]
     Indication: PROPHYLAXIS OF NAUSEA AND VOMITING
     Dosage: CAPS
     Dates: start: 20091008
  30. DEXAMETHASONE [Concomitant]
     Indication: PAIN
     Dates: start: 20091008
  31. MANNITOL [Concomitant]
     Indication: FLUID REPLACEMENT
     Dates: start: 20091008
  32. SODIUM CHLORIDE [Concomitant]
     Indication: FLUID REPLACEMENT
     Dates: start: 20091008
  33. MAGNESIUM CITRATE [Concomitant]
     Indication: CONSTIPATION
     Dates: start: 20091016
  34. DUTASTERIDE [Concomitant]
     Indication: PROSTATOMEGALY
  35. FILGRASTIM [Concomitant]
     Indication: NEUTROPENIA
     Dates: start: 20091020
  36. MOXIFLOXACIN [Concomitant]
     Indication: INFECTION
     Dates: start: 20091023, end: 20091230
  37. FENTANYL-75 [Concomitant]
     Indication: PAIN
     Route: 062
     Dates: start: 20091024
  38. PARACETAMOL [Concomitant]
     Indication: NECK PAIN
     Dates: start: 20091027
  39. LINEZOLID [Concomitant]
     Indication: FUNGAL INFECTION
     Dates: start: 20091029, end: 20091103
  40. PANTOPRAZOLE [Concomitant]
     Indication: PROPHYLAXIS
     Dates: start: 20091030
  41. PEGFILGRASTIM [Concomitant]
     Indication: PROPHYLAXIS
     Dosage: 6MG ONCE ON 13NOV2009;3DEC2009;24DEC2009;14JAN010
     Dates: start: 20091113, end: 20100114

REACTIONS (2)
  - DEHYDRATION [None]
  - RENAL FAILURE ACUTE [None]
